FAERS Safety Report 6420617-2 (Version None)
Quarter: 2009Q4

REPORT INFORMATION
  Report Type: 
  Country: None (occurrence: None)
  Receive Date: 20091027
  Receipt Date: 20091013
  Transmission Date: 20100525
  Serious: No
  Sender: FDA-Public Use
  Company Number: 900628435-AKO-4980AE

PATIENT

DRUGS (2)
  1. GENTAK [Suspect]
     Dosage: OPHTHALMIC
     Route: 047
     Dates: start: 20091005
  2. GENTAK [Suspect]

REACTIONS (2)
  - BLISTER [None]
  - DERMATITIS CONTACT [None]
